FAERS Safety Report 26171881 (Version 1)
Quarter: 2025Q4

REPORT INFORMATION
  Report Type: Spontaneous
  Country: EU (occurrence: EU)
  Receive Date: 20251217
  Receipt Date: 20251217
  Transmission Date: 20260118
  Serious: Yes (Other)
  Sender: TEVA
  Company Number: EU-TEVA-VS-3403626

PATIENT
  Age: 62 Year
  Sex: Female

DRUGS (2)
  1. ATOMOXETINE HYDROCHLORIDE [Suspect]
     Active Substance: ATOMOXETINE HYDROCHLORIDE
     Indication: Attention deficit hyperactivity disorder
     Dosage: ABOUT 10 YEARS AGO, TEVA, DAILY IN THE MORNING
     Route: 065
  2. METHYLPHENIDATE [Concomitant]
     Active Substance: METHYLPHENIDATE
     Indication: Attention deficit hyperactivity disorder

REACTIONS (3)
  - Drug dependence [Unknown]
  - Product availability issue [Unknown]
  - Dizziness [Unknown]
